FAERS Safety Report 17256414 (Version 1)
Quarter: 2020Q1

REPORT INFORMATION
  Report Type: Spontaneous
  Country: US (occurrence: US)
  Receive Date: 20200108
  Receipt Date: 20200108
  Transmission Date: 20200409
  Serious: Yes (Other)
  Sender: FDA-Public Use
  Company Number: None

PATIENT
  Age: 33 Year
  Sex: Female
  Weight: 56.25 kg

DRUGS (1)
  1. U DREAM FULL SLEEP [Suspect]
     Active Substance: HERBALS
     Indication: INSOMNIA
     Dosage: ?          QUANTITY:1 CAPSULE(S);?
     Route: 060

REACTIONS (6)
  - Panic attack [None]
  - Loss of consciousness [None]
  - Autoscopy [None]
  - Dizziness [None]
  - Hallucination [None]
  - Delusion [None]

NARRATIVE: CASE EVENT DATE: 20200107
